FAERS Safety Report 22305193 (Version 7)
Quarter: 2023Q4

REPORT INFORMATION
  Report Type: Report from Study
  Country: IN (occurrence: IN)
  Receive Date: 20230510
  Receipt Date: 20231013
  Transmission Date: 20240110
  Serious: Yes (Hospitalization)
  Sender: FDA-Public Use
  Company Number: IN-002147023-NVSC2023IN103452

PATIENT
  Age: 52 Year
  Sex: Male
  Weight: 57 kg

DRUGS (10)
  1. OFATUMUMAB [Suspect]
     Active Substance: OFATUMUMAB
     Indication: Multiple sclerosis relapse
     Dosage: 20 MG, Q4W
     Route: 058
     Dates: start: 20191230, end: 20230416
  2. OFATUMUMAB [Suspect]
     Active Substance: OFATUMUMAB
     Dosage: 20 MG, Q4W
     Route: 058
     Dates: start: 20230531
  3. PLACEBO [Suspect]
     Active Substance: UNSPECIFIED INGREDIENT
     Indication: Multiple sclerosis relapse
     Dosage: 1 DOSAGE FORM, QW
     Route: 058
     Dates: start: 20200106, end: 20230416
  4. PLACEBO [Suspect]
     Active Substance: UNSPECIFIED INGREDIENT
     Dosage: 1 MG, QW
     Route: 058
     Dates: start: 20230531
  5. BACLOFEN [Concomitant]
     Active Substance: BACLOFEN
     Indication: Myelopathy
     Dosage: UNK
     Route: 065
     Dates: start: 20200929
  6. BACLOFEN [Concomitant]
     Active Substance: BACLOFEN
     Dosage: UNK
     Route: 065
     Dates: start: 20210130
  7. PREGABALIN [Concomitant]
     Active Substance: PREGABALIN
     Indication: Myelopathy
     Dosage: UNK
     Route: 065
     Dates: start: 20200929
  8. ROLITEN [Concomitant]
     Indication: Myelopathy
     Dosage: UNK
     Route: 065
     Dates: start: 20210626, end: 20230513
  9. DALFAMPRIDINE [Concomitant]
     Active Substance: DALFAMPRIDINE
     Indication: Myelopathy
     Dosage: UNK
     Route: 065
     Dates: start: 20210629, end: 20230513
  10. CALCIUM CARBONATE\CHOLECALCIFEROL [Concomitant]
     Active Substance: CALCIUM CARBONATE\CHOLECALCIFEROL
     Indication: Myelopathy
     Dosage: UNK
     Route: 065
     Dates: start: 20210629

REACTIONS (1)
  - Furuncle [Recovered/Resolved]

NARRATIVE: CASE EVENT DATE: 20230416
